FAERS Safety Report 9412656 (Version 3)
Quarter: 2013Q4

REPORT INFORMATION
  Report Type: Spontaneous
  Country: GB (occurrence: GB)
  Receive Date: 20130722
  Receipt Date: 20131119
  Transmission Date: 20140711
  Serious: Yes (Hospitalization, Other)
  Sender: FDA-Public Use
  Company Number: GB-PFIZER INC-2013199942

PATIENT
  Age: 51 Year
  Sex: 0

DRUGS (7)
  1. CO-AMOXICLAV [Suspect]
     Indication: PNEUMONIA PNEUMOCOCCAL
     Dosage: UNK
     Route: 041
     Dates: start: 20110521, end: 20110525
  2. CO-AMOXICLAV [Suspect]
     Indication: PNEUMONIA PNEUMOCOCCAL
     Dosage: 625 MG, 3X/DAY
     Route: 048
     Dates: start: 20110526, end: 20110601
  3. CLARITHROMYCIN [Suspect]
     Indication: PNEUMONIA PNEUMOCOCCAL
     Dosage: 500 MG/DAY
     Route: 041
     Dates: start: 20110519, end: 20110525
  4. LEVOFLOXACIN [Suspect]
     Indication: PNEUMONIA
     Dosage: UNK
     Route: 041
     Dates: start: 20110519, end: 20110520
  5. LEVOFLOXACIN [Suspect]
     Indication: PNEUMONIA
     Dosage: 500 MG, 2X/DAY
     Route: 048
     Dates: start: 20110526, end: 20110602
  6. PIPERACILLIN/TAZOBACTAM [Suspect]
     Dosage: UNK
     Route: 041
     Dates: start: 20110607
  7. BENZYLPENICILLIN [Suspect]
     Indication: PNEUMONIA
     Dosage: 1.2 G, 1X/DAY
     Route: 041
     Dates: start: 20110518, end: 20110520

REACTIONS (3)
  - Respiratory arrest [Unknown]
  - Diarrhoea [Unknown]
  - Clostridium difficile infection [Unknown]
